FAERS Safety Report 9561853 (Version 2)
Quarter: 2013Q4

REPORT INFORMATION
  Report Type: Report from Study
  Country: US (occurrence: US)
  Receive Date: 20130927
  Receipt Date: 20131030
  Transmission Date: 20140711
  Serious: Yes (Hospitalization, Other)
  Sender: FDA-Public Use
  Company Number: US-ASTELLAS-2013US009908

PATIENT
  Age: 63 Year
  Sex: Male
  Weight: 75 kg

DRUGS (2)
  1. ERLOTINIB TABLET [Suspect]
     Indication: RENAL CELL CARCINOMA
     Dosage: 150 MG, UID/QD
     Route: 048
     Dates: start: 20130821, end: 20130911
  2. TIVANTINIB [Suspect]
     Indication: RENAL CELL CARCINOMA
     Dosage: 360 MG, BID
     Route: 048
     Dates: start: 20130821, end: 20130911

REACTIONS (5)
  - Off label use [Unknown]
  - Paraneoplastic syndrome [Recovered/Resolved]
  - Bladder outlet obstruction [Recovering/Resolving]
  - Calculus bladder [Recovering/Resolving]
  - Cellulitis [Recovered/Resolved]
